FAERS Safety Report 7048995-4 (Version None)
Quarter: 2010Q4

REPORT INFORMATION
  Report Type: 
  Country: None (occurrence: None)
  Receive Date: 20101018
  Receipt Date: 20101014
  Transmission Date: 20110411
  Serious: Yes (Hospitalization, Other)
  Sender: FDA-Public Use
  Company Number: CA-BRISTOL-MYERS SQUIBB COMPANY-15329907

PATIENT
  Age: 63 Year
  Sex: Male
  Weight: 151 kg

DRUGS (4)
  1. CARBIDOPA + LEVODOPA [Interacting]
     Indication: PARKINSON'S DISEASE
     Dosage: 1 D.F:L00MG/25MG;1.5 TABLETS FOUR TIMES DAILY
     Route: 050
  2. ENTERAL NUTRITION [Interacting]
  3. PRAMIPEXOLE DIHYDROCHLORIDE [Suspect]
     Indication: PARKINSON'S DISEASE
  4. ENTACAPONE [Suspect]
     Indication: PARKINSON'S DISEASE

REACTIONS (2)
  - FOOD INTERACTION [None]
  - NEUROLEPTIC MALIGNANT SYNDROME [None]
